FAERS Safety Report 6613565-6 (Version None)
Quarter: 2010Q1

REPORT INFORMATION
  Report Type: 
  Country: None (occurrence: None)
  Receive Date: 20100304
  Receipt Date: 20100216
  Transmission Date: 20100710
  Serious: Yes (Hospitalization, Other)
  Sender: FDA-Public Use
  Company Number: JP-ROCHE-635521

PATIENT
  Sex: Male
  Weight: 49 kg

DRUGS (14)
  1. TOCILIZUMAB [Suspect]
     Indication: RHEUMATOID ARTHRITIS
     Route: 041
     Dates: start: 20081224, end: 20081224
  2. TOCILIZUMAB [Suspect]
     Route: 041
     Dates: start: 20090121, end: 20090121
  3. TOCILIZUMAB [Suspect]
     Route: 041
     Dates: start: 20090317, end: 20090317
  4. PREDONINE [Suspect]
     Indication: DRUG USE FOR UNKNOWN INDICATION
     Route: 048
     Dates: start: 20081206, end: 20081226
  5. PREDONINE [Suspect]
     Route: 048
     Dates: start: 20081227, end: 20090107
  6. PREDONINE [Suspect]
     Route: 048
     Dates: start: 20090108, end: 20090114
  7. PREDONINE [Suspect]
     Route: 048
     Dates: start: 20090115, end: 20090219
  8. PREDONINE [Suspect]
     Route: 048
     Dates: start: 20090220, end: 20090409
  9. PREDONINE [Suspect]
     Route: 048
     Dates: start: 20090410, end: 20090423
  10. PREDONINE [Suspect]
     Route: 048
     Dates: start: 20090424
  11. OMEPRAL [Concomitant]
     Dosage: FORM: ENTERIC.
     Route: 048
     Dates: start: 20081206
  12. MINOCYCLINE HYDROCHLORIDE [Concomitant]
     Dosage: FORM: ORAL FORMULATION (NOT OTHERWISE SPECIFIED).
     Route: 048
     Dates: start: 20081208, end: 20090205
  13. MINOCYCLINE HYDROCHLORIDE [Concomitant]
     Dosage: FORM: ORAL FORMULATION (NOT OTHERWISE SPECIFIED).
     Route: 048
     Dates: start: 20090206
  14. ASPIRIN [Concomitant]
     Dosage: FORM: ENTERIC.
     Route: 048
     Dates: start: 20081210, end: 20090514

REACTIONS (4)
  - NEUROPATHY PERIPHERAL [None]
  - PURPURA [None]
  - SPINAL COMPRESSION FRACTURE [None]
  - VENOUS THROMBOSIS LIMB [None]
